FAERS Safety Report 9862225 (Version 2)
Quarter: 2014Q1

REPORT INFORMATION
  Report Type: Spontaneous
  Country: IT (occurrence: IT)
  Receive Date: 20140203
  Receipt Date: 20140211
  Transmission Date: 20141002
  Serious: Yes (Hospitalization)
  Sender: FDA-Public Use
  Company Number: IT-BAYER-2014-012797

PATIENT
  Age: 79 Year
  Sex: Male

DRUGS (6)
  1. CIPROFLOXACIN [Suspect]
     Dosage: 500 MG, BID
     Route: 048
     Dates: start: 20131107, end: 20131112
  2. HYDROCHLOROTHIAZIDE W/VALSARTAN [Suspect]
     Indication: HYPERTENSION
     Dosage: UNK
     Route: 048
  3. HYDROCHLOROTHIAZIDE W/VALSARTAN [Suspect]
     Indication: HYPERTENSION
     Dosage: UNK
     Route: 048
  4. TAVANIC [Suspect]
     Indication: BRONCHITIS
     Dosage: DAILY DOSE 500 MG
     Route: 048
     Dates: start: 20131113, end: 20131119
  5. PARACETAMOL [Concomitant]
     Indication: HAND FRACTURE
     Dosage: 500 MG, PRN
     Route: 048
  6. TAMSULOSIN [Concomitant]
     Dosage: DAILY DOSE 0.4 MG
     Route: 048

REACTIONS (4)
  - Asthenia [Recovered/Resolved]
  - Renal failure acute [Recovered/Resolved]
  - Hypotension [Recovered/Resolved]
  - Syncope [Recovered/Resolved]
